FAERS Safety Report 8804955 (Version 1)
Quarter: 2012Q4

REPORT INFORMATION
  Report Type: 
  Country: AU (occurrence: AU)
  Receive Date: 20120924
  Receipt Date: 20120924
  Transmission Date: 20130627
  Serious: Yes (Other)
  Sender: FDA-Public Use
  Company Number: AU-ROCHE-1122732

PATIENT
  Sex: Male

DRUGS (3)
  1. MABTHERA [Suspect]
     Indication: IDIOPATHIC THROMBOCYTOPENIC PURPURA
     Dosage: supplied 1 in 4 doses
     Route: 065
  2. PREDNISOLONE [Concomitant]
  3. IMURAN [Concomitant]

REACTIONS (2)
  - Pneumonia [Unknown]
  - Cardiac failure [Unknown]
